FAERS Safety Report 15713091 (Version 2)
Quarter: 2018Q4

REPORT INFORMATION
  Report Type: Report from Study
  Country: GT (occurrence: GT)
  Receive Date: 20181212
  Receipt Date: 20181225
  Transmission Date: 20190205
  Serious: Yes (Other)
  Sender: FDA-Public Use
  Company Number: PHHY2018GT179886

PATIENT
  Sex: Male
  Weight: 86.17 kg

DRUGS (1)
  1. EXFORGE [Suspect]
     Active Substance: AMLODIPINE BESYLATE\VALSARTAN
     Indication: HYPERTENSION
     Dosage: 1 DF  (AMLODIPINE 10 MG, VALSARTAN 320 MG), QD (MORNING)
     Route: 065

REACTIONS (6)
  - Pain [Recovering/Resolving]
  - Malaise [Unknown]
  - Prostate cancer [Unknown]
  - Metastases to bone [Unknown]
  - Hernia [Unknown]
  - Prostatomegaly [Unknown]
